FAERS Safety Report 20034037 (Version 1)
Quarter: 2021Q4

REPORT INFORMATION
  Report Type: Spontaneous
  Country: US (occurrence: US)
  Receive Date: 20211104
  Receipt Date: 20211104
  Transmission Date: 20220303
  Serious: Yes (Life-Threatening, Hospitalization)
  Sender: FDA-Public Use
  Company Number: US-MYLANLABS-2021M1080720

PATIENT
  Age: 66 Year
  Sex: Female
  Weight: 89.4 kg

DRUGS (3)
  1. METOPROLOL [Interacting]
     Active Substance: METOPROLOL
     Indication: Atrial fibrillation
     Dosage: DOSE: 50MG IN THE MORNING AND 25MG AT BEDTIME
     Route: 048
  2. VERAPAMIL [Interacting]
     Active Substance: VERAPAMIL HYDROCHLORIDE
     Indication: Atrial fibrillation
     Dosage: 240 MILLIGRAM, BID EXTENDED RELEASE
     Route: 048
  3. SPIRONOLACTONE [Concomitant]
     Active Substance: SPIRONOLACTONE
     Indication: Product used for unknown indication
     Dosage: 50 MILLIGRAM, QD
     Route: 048

REACTIONS (9)
  - Bradycardia [Recovered/Resolved]
  - Hypotension [Recovered/Resolved]
  - Dyspnoea [Recovered/Resolved]
  - Chest pain [Recovered/Resolved]
  - Asthenia [Recovered/Resolved]
  - Blood glucose increased [Recovered/Resolved]
  - Blood potassium increased [Recovered/Resolved]
  - Drug interaction [Recovered/Resolved]
  - Food interaction [Recovered/Resolved]
